FAERS Safety Report 6922931-0 (Version None)
Quarter: 2010Q3

REPORT INFORMATION
  Report Type: 
  Country: None (occurrence: None)
  Receive Date: 20100813
  Receipt Date: 20100810
  Transmission Date: 20110219
  Serious: Yes (Death)
  Sender: FDA-Public Use
  Company Number: PHHY2010JP52585

PATIENT

DRUGS (4)
  1. RITALIN [Suspect]
     Indication: DEPRESSION
     Dosage: 15 MG, QD (ONE AND A HALF 10 MG TABLETS)
     Route: 048
  2. RITALIN [Suspect]
     Dosage: 4 WEEKS DOSE AT ONCE
     Route: 048
  3. TOFRANIL [Suspect]
     Indication: DEPRESSION
     Dosage: UNK
     Route: 048
  4. TOFRANIL [Suspect]
     Dosage: 4 WEEKS DOSE AT ONCE
     Route: 048

REACTIONS (1)
  - OVERDOSE [None]
